FAERS Safety Report 7084693-9 (Version None)
Quarter: 2010Q4

REPORT INFORMATION
  Report Type: 
  Country: None (occurrence: None)
  Receive Date: 20101104
  Receipt Date: 20101025
  Transmission Date: 20110411
  Serious: Yes (Hospitalization)
  Sender: FDA-Public Use
  Company Number: SK-AMGEN INC.-QUU437206

PATIENT

DRUGS (4)
  1. NEULASTA [Suspect]
     Indication: CHEMOTHERAPY
     Dosage: 6 MG, QCYCLE
     Route: 058
     Dates: start: 20100720, end: 20100831
  2. BLEOMYCIN SULFATE [Concomitant]
     Dosage: UNK
     Dates: start: 20100720
  3. ETOPOSIDE [Concomitant]
     Dosage: UNK
     Dates: start: 20100720
  4. CISPLATIN [Concomitant]
     Dosage: UNK
     Dates: start: 20100720

REACTIONS (2)
  - CONSTIPATION [None]
  - SPLENIC HAEMATOMA [None]
